FAERS Safety Report 15180482 (Version 2)
Quarter: 2018Q3

REPORT INFORMATION
  Report Type: Spontaneous
  Country: US (occurrence: US)
  Receive Date: 20180723
  Receipt Date: 20180723
  Transmission Date: 20181010
  Serious: Yes (Other)
  Sender: FDA-Public Use
  Company Number: US-BAYER-2018-132417

PATIENT
  Age: 42 Year
  Sex: Female

DRUGS (1)
  1. MIRENA [Suspect]
     Active Substance: LEVONORGESTREL
     Dosage: 20 MCG/24HR, CONT
     Route: 015

REACTIONS (9)
  - Medical device site inflammation [None]
  - Procedural pain [None]
  - Complication of device insertion [None]
  - Arterial injury [None]
  - Uterine cervix stenosis [None]
  - Device dislocation [None]
  - Abdominal pain [None]
  - Retroperitoneal fibrosis [None]
  - Retroperitoneal haematoma [None]
